FAERS Safety Report 20709289 (Version 7)
Quarter: 2025Q3

REPORT INFORMATION
  Report Type: Report from Study
  Country: US (occurrence: US)
  Receive Date: 20220414
  Receipt Date: 20250709
  Transmission Date: 20251020
  Serious: Yes (Hospitalization, Other)
  Sender: TAKEDA
  Company Number: US-TAKEDA-US201927064

PATIENT
  Sex: Female

DRUGS (4)
  1. HUMAN IMMUNOGLOBULIN G [Suspect]
     Active Substance: HUMAN IMMUNOGLOBULIN G
     Indication: Primary immunodeficiency syndrome
  2. HUMAN IMMUNOGLOBULIN G [Suspect]
     Active Substance: HUMAN IMMUNOGLOBULIN G
     Indication: Secondary immunodeficiency
  3. HUMAN IMMUNOGLOBULIN G [Suspect]
     Active Substance: HUMAN IMMUNOGLOBULIN G
  4. HUMAN IMMUNOGLOBULIN G [Suspect]
     Active Substance: HUMAN IMMUNOGLOBULIN G

REACTIONS (19)
  - Spinal cord abscess [Unknown]
  - Aphasia [Unknown]
  - Haemorrhage [Unknown]
  - Incorrect drug administration rate [Unknown]
  - Swelling [Unknown]
  - Tremor [Unknown]
  - Chills [Unknown]
  - Weight increased [Recovering/Resolving]
  - Blood immunoglobulin M increased [Unknown]
  - Protein total increased [Recovered/Resolved]
  - Cytokine increased [Unknown]
  - Meningism [Unknown]
  - Blood immunoglobulin M decreased [Unknown]
  - Brucella test positive [Unknown]
  - Pharyngeal paraesthesia [Unknown]
  - Hypoaesthesia [Unknown]
  - White blood cell count decreased [Unknown]
  - Influenza like illness [Unknown]
  - Arthralgia [Recovering/Resolving]
